FAERS Safety Report 4751022-2 (Version None)
Quarter: 2005Q3

REPORT INFORMATION
  Report Type: 
  Country: None (occurrence: None)
  Receive Date: 20050822
  Receipt Date: 20050809
  Transmission Date: 20060218
  Serious: Yes (Hospitalization, Other)
  Sender: FDA-Public Use
  Company Number: 2005113250

PATIENT
  Age: 60 Year
  Sex: Female

DRUGS (14)
  1. ZOLOFT [Suspect]
     Indication: DEPRESSION
     Dosage: 50 MG (50 MG, 1 IN 1 D),
  2. NORVASC [Concomitant]
  3. HYDROCODONE (HYDROCODONE) [Concomitant]
  4. ACETYLSALICYLIC ACID SRT [Concomitant]
  5. LOPRESSOR [Concomitant]
  6. PROTONIX [Concomitant]
  7. OXYBUTYNIN CHLORIDE [Concomitant]
  8. ALL OTHER THERAPEUTIC PRODUCTS (ALL OTHER THERAPEUTIC PRODUCTS) [Concomitant]
  9. BION TEARS (DEXTRAN 70, HYPROMELLOSE) [Concomitant]
  10. ASTELIN [Concomitant]
  11. PROMETHAZINE [Concomitant]
  12. TESSALON [Concomitant]
  13. NOVOLOG [Concomitant]
  14. LANTUS [Concomitant]

REACTIONS (18)
  - AORTIC OCCLUSION [None]
  - ARTERIAL OCCLUSIVE DISEASE [None]
  - ARTHRALGIA [None]
  - BLOOD PRESSURE INCREASED [None]
  - CARDIAC DISORDER [None]
  - CHEST PAIN [None]
  - CHOLELITHIASIS [None]
  - DEPRESSION [None]
  - DYSPNOEA [None]
  - DYSSTASIA [None]
  - GALLBLADDER PAIN [None]
  - INCONTINENCE [None]
  - INFECTION [None]
  - KIDNEY SMALL [None]
  - PAIN [None]
  - RENAL ARTERY STENOSIS [None]
  - RENAL FAILURE ACUTE [None]
  - VOMITING [None]
